FAERS Safety Report 6261786-7 (Version None)
Quarter: 2009Q3

REPORT INFORMATION
  Report Type: 
  Country: None (occurrence: None)
  Receive Date: 20090702
  Receipt Date: 20090317
  Transmission Date: 20100115
  Serious: No
  Sender: FDA-Public Use
  Company Number: 1000005302

PATIENT
  Age: 68 Year
  Sex: Male

DRUGS (5)
  1. BYSTOLIC [Suspect]
     Indication: HYPERTENSION
     Dosage: 5 MG (5  MG,1 IN 1 D), ORAL
     Route: 048
     Dates: start: 20090305, end: 20090307
  2. BYSTOLIC [Suspect]
     Indication: HYPERTENSION
     Dosage: 5 MG (5  MG,1 IN 1 D), ORAL
     Route: 048
     Dates: start: 20090313, end: 20090314
  3. LIPITOR [Concomitant]
  4. HYZAAR [Concomitant]
  5. CARDIZEM [Concomitant]

REACTIONS (1)
  - BLOOD PRESSURE INCREASED [None]
